FAERS Safety Report 24177488 (Version 2)
Quarter: 2024Q3

REPORT INFORMATION
  Report Type: Spontaneous
  Country: NL (occurrence: NL)
  Receive Date: 20240806
  Receipt Date: 20240913
  Transmission Date: 20241016
  Serious: No
  Sender: UCB
  Company Number: NL-UCBSA-2024038786

PATIENT
  Age: 61 Year
  Sex: Male

DRUGS (1)
  1. NEUPRO [Suspect]
     Active Substance: ROTIGOTINE
     Indication: Parkinson^s disease
     Dosage: 3 MILLIGRAM
     Dates: start: 202311

REACTIONS (2)
  - Hyperhidrosis [Unknown]
  - Product adhesion issue [Unknown]

NARRATIVE: CASE EVENT DATE: 20240724
